FAERS Safety Report 21621334 (Version 1)
Quarter: 2022Q4

REPORT INFORMATION
  Report Type: Spontaneous
  Country: GB (occurrence: GB)
  Receive Date: 20221121
  Receipt Date: 20221121
  Transmission Date: 20230113
  Serious: Yes (Other)
  Sender: FDA-Public Use
  Company Number: None

PATIENT
  Age: 37 Year
  Sex: Male
  Weight: 87 kg

DRUGS (3)
  1. ACETAMINOPHEN [Suspect]
     Active Substance: ACETAMINOPHEN
     Indication: Product used for unknown indication
     Dosage: UNIT DOSE: 800 MG
     Route: 065
  2. METRONIDAZOLE [Suspect]
     Active Substance: METRONIDAZOLE
     Indication: Tooth abscess
     Dosage: WITH MEALSUNIT DOSE: 1200 MG
     Route: 065
     Dates: start: 20200927, end: 20201002
  3. IBUPROFEN [Concomitant]
     Active Substance: IBUPROFEN
     Indication: Product used for unknown indication
     Route: 065

REACTIONS (10)
  - Headache [Recovered/Resolved]
  - Confusional state [Recovered/Resolved]
  - Chromaturia [Recovered/Resolved]
  - Balance disorder [Recovered/Resolved]
  - Disturbance in attention [Unknown]
  - Lethargy [Unknown]
  - Decreased appetite [Unknown]
  - Dysphagia [Unknown]
  - Pain [Unknown]
  - Nausea [Unknown]

NARRATIVE: CASE EVENT DATE: 20200928
